FAERS Safety Report 6975243-3 (Version None)
Quarter: 2010Q3

REPORT INFORMATION
  Report Type: 
  Country: None (occurrence: None)
  Receive Date: 20100910
  Receipt Date: 20090331
  Transmission Date: 20110219
  Serious: No
  Sender: FDA-Public Use
  Company Number: US-WYE-H08337009

PATIENT
  Weight: 99.88 kg

DRUGS (2)
  1. PRISTIQ [Suspect]
     Indication: ANXIETY
     Route: 048
     Dates: start: 20090201
  2. AMOXICILLIN AND CLAVULANATE POTASSIUM [Suspect]
     Indication: APPENDICITIS PERFORATED
     Route: 048

REACTIONS (2)
  - AGITATION [None]
  - HALLUCINATION, VISUAL [None]
